FAERS Safety Report 6541200-4 (Version None)
Quarter: 2010Q1

REPORT INFORMATION
  Report Type: 
  Country: None (occurrence: None)
  Receive Date: 20100118
  Receipt Date: 20100112
  Transmission Date: 20100710
  Serious: Yes (Hospitalization)
  Sender: FDA-Public Use
  Company Number: B0626458A

PATIENT
  Sex: Female

DRUGS (4)
  1. CLAVULIN [Suspect]
     Dosage: 2G PER DAY
     Route: 048
     Dates: start: 20090210, end: 20090211
  2. OKI [Suspect]
     Dosage: 80MG PER DAY
     Route: 048
     Dates: start: 20090210
  3. ESOMEPRAZOLE [Concomitant]
  4. GASTRO GEL [Concomitant]

REACTIONS (3)
  - HEADACHE [None]
  - PRURITUS [None]
  - URTICARIA [None]
